FAERS Safety Report 25616521 (Version 1)
Quarter: 2025Q3

REPORT INFORMATION
  Report Type: Spontaneous
  Country: IR (occurrence: US)
  Receive Date: 20250729
  Receipt Date: 20250729
  Transmission Date: 20251020
  Serious: No
  Sender: ELI LILLY AND COMPANY
  Company Number: IR-ELI_LILLY_AND_COMPANY-US202507022867

PATIENT
  Sex: Male

DRUGS (1)
  1. MOUNJARO [Suspect]
     Active Substance: TIRZEPATIDE
     Indication: Diabetes mellitus
     Route: 065

REACTIONS (3)
  - Lymphocyte count increased [Unknown]
  - Blood thyroid stimulating hormone increased [Unknown]
  - Blood glucose increased [Unknown]
